FAERS Safety Report 25166545 (Version 2)
Quarter: 2025Q2

REPORT INFORMATION
  Report Type: Report from Study
  Country: CN (occurrence: CN)
  Receive Date: 20250407
  Receipt Date: 20250411
  Transmission Date: 20250717
  Serious: Yes (Hospitalization)
  Sender: BIOGEN
  Company Number: CN-BAT-2025BAT000337

PATIENT
  Age: 45 Year
  Sex: Female
  Weight: 64 kg

DRUGS (7)
  1. TOFIDENCE [Suspect]
     Active Substance: TOCILIZUMAB-BAVI
     Indication: Prophylaxis
     Dosage: FIRST CYCLE
     Route: 041
     Dates: start: 20250211, end: 20250211
  2. TOFIDENCE [Suspect]
     Active Substance: TOCILIZUMAB-BAVI
     Indication: Prophylaxis
     Dosage: SECOND CYCLE
     Route: 041
     Dates: start: 20250311, end: 20250311
  3. INVESTIGATIONAL PRODUCT [Suspect]
     Active Substance: INVESTIGATIONAL PRODUCT
     Indication: Neoplasm
     Dosage: FIRST CYCLE
     Route: 041
     Dates: start: 20250211, end: 20250211
  4. INVESTIGATIONAL PRODUCT [Suspect]
     Active Substance: INVESTIGATIONAL PRODUCT
     Indication: Neoplasm
     Dosage: SECOND CYCLE
     Route: 041
     Dates: start: 20250311, end: 20250311
  5. Tenofovir amibufenamide tablets [Concomitant]
     Indication: Chronic hepatitis B
     Dosage: ONGOING
     Route: 048
     Dates: start: 202312
  6. Glutathione tablets [Concomitant]
     Indication: Alanine aminotransferase increased
     Dosage: ONGOING
     Route: 048
     Dates: start: 20250218
  7. GLYCYRRHIZIN [Concomitant]
     Active Substance: GLYCYRRHIZIN
     Indication: Alanine aminotransferase increased
     Route: 048
     Dates: start: 20250218, end: 20250328

REACTIONS (3)
  - Pyrexia [Recovered/Resolved]
  - Platelet count decreased [Recovered/Resolved]
  - Off label use [Unknown]

NARRATIVE: CASE EVENT DATE: 20250311
